FAERS Safety Report 7106294-6 (Version None)
Quarter: 2010Q4

REPORT INFORMATION
  Report Type: 
  Country: None (occurrence: None)
  Receive Date: 20101116
  Receipt Date: 20101111
  Transmission Date: 20110411
  Serious: Yes (Other)
  Sender: FDA-Public Use
  Company Number: GB-PFIZER INC-2010146528

PATIENT
  Sex: Female

DRUGS (5)
  1. NEURONTIN [Suspect]
     Indication: NEUROPATHY PERIPHERAL
     Dosage: 300 MG, 4X/DAY
  2. SIMVASTATIN [Concomitant]
  3. FLUOCINONIDE [Concomitant]
  4. ATENOLOL [Concomitant]
  5. PARACETAMOL [Concomitant]

REACTIONS (5)
  - DIZZINESS [None]
  - DRY MOUTH [None]
  - JOINT ARTHROPLASTY [None]
  - MALAISE [None]
  - WITHDRAWAL SYNDROME [None]
